FAERS Safety Report 25637264 (Version 1)
Quarter: 2025Q3

REPORT INFORMATION
  Report Type: Spontaneous
  Country: GB (occurrence: GB)
  Receive Date: 20250804
  Receipt Date: 20250804
  Transmission Date: 20251021
  Serious: Yes (Other)
  Sender: AUROBINDO
  Company Number: GB-MHRA-TPP32890011C31183551YC1753277893323

PATIENT
  Age: 36 Year
  Sex: Male
  Weight: 92 kg

DRUGS (7)
  1. TERBINAFINE [Suspect]
     Active Substance: TERBINAFINE
     Indication: Ill-defined disorder
     Route: 065
  2. AMITRIPTYLINE HYDROCHLORIDE [Concomitant]
     Active Substance: AMITRIPTYLINE HYDROCHLORIDE
     Indication: Ill-defined disorder
     Route: 065
     Dates: start: 20250603, end: 20250701
  3. MIRTAZAPINE [Concomitant]
     Active Substance: MIRTAZAPINE
     Indication: Ill-defined disorder
     Route: 065
     Dates: start: 20250411, end: 20250701
  4. OMEPRAZOLE [Concomitant]
     Active Substance: OMEPRAZOLE
     Indication: Ill-defined disorder
     Route: 065
     Dates: start: 20250617, end: 20250715
  5. LOPERAMIDE [Concomitant]
     Active Substance: LOPERAMIDE
     Indication: Ill-defined disorder
     Route: 065
     Dates: start: 20250704, end: 20250707
  6. MEBEVERINE HYDROCHLORIDE [Concomitant]
     Active Substance: MEBEVERINE HYDROCHLORIDE
     Indication: Ill-defined disorder
     Route: 065
     Dates: start: 20250704, end: 20250707
  7. PROMETHAZINE HYDROCHLORIDE [Concomitant]
     Active Substance: PROMETHAZINE HYDROCHLORIDE
     Indication: Ill-defined disorder
     Route: 065
     Dates: start: 20250704, end: 20250709

REACTIONS (3)
  - Skin infection [Not Recovered/Not Resolved]
  - Liver injury [Recovering/Resolving]
  - Alopecia [Unknown]
